FAERS Safety Report 6004246-0 (Version None)
Quarter: 2008Q4

REPORT INFORMATION
  Report Type: 
  Country: None (occurrence: None)
  Receive Date: 20081216
  Receipt Date: 20081204
  Transmission Date: 20090506
  Serious: Yes (Hospitalization)
  Sender: FDA-Public Use
  Company Number: US-PFIZER INC-2008030866

PATIENT
  Sex: Female
  Weight: 185 kg

DRUGS (14)
  1. BLINDED *PLACEBO [Suspect]
     Indication: RHEUMATOID ARTHRITIS
     Dosage: INTERVAL:  DAILY
     Route: 048
     Dates: start: 20070607, end: 20080515
  2. CELECOXIB [Suspect]
     Indication: RHEUMATOID ARTHRITIS
     Dosage: INTERVAL:  DAILY
     Route: 048
     Dates: start: 20070607, end: 20080515
  3. BLINDED IBUPROFEN [Suspect]
     Indication: RHEUMATOID ARTHRITIS
     Dosage: INTERVAL:  DAILY
     Route: 048
     Dates: start: 20070607, end: 20080515
  4. BLINDED NAPROXEN [Suspect]
     Indication: RHEUMATOID ARTHRITIS
     Dosage: INTERVAL:  DAILY
     Route: 048
     Dates: start: 20070607, end: 20080515
  5. BLINDED *PLACEBO [Suspect]
     Indication: OSTEOARTHRITIS
  6. CELECOXIB [Suspect]
     Indication: OSTEOARTHRITIS
  7. BLINDED IBUPROFEN [Suspect]
     Indication: OSTEOARTHRITIS
  8. BLINDED NAPROXEN [Suspect]
     Indication: OSTEOARTHRITIS
  9. NEXIUM [Concomitant]
     Dosage: 40 MG, 1X/DAY
     Route: 048
     Dates: start: 20070607, end: 20080515
  10. IBANDRONATE SODIUM [Concomitant]
     Dates: start: 20050503
  11. DYAZIDE [Concomitant]
     Dates: start: 20050629
  12. NASONEX [Concomitant]
     Dates: start: 20050629
  13. ACETYLSALICYLIC ACID [Concomitant]
     Dates: start: 20050101
  14. OXYCODONE [Concomitant]
     Dates: start: 20080107, end: 20080131

REACTIONS (1)
  - OSTEOARTHRITIS [None]
